FAERS Safety Report 8840200 (Version 1)
Quarter: 2012Q4

REPORT INFORMATION
  Report Type: Report from Study
  Country: CO (occurrence: CO)
  Receive Date: 20121015
  Receipt Date: 20121015
  Transmission Date: 20130627
  Serious: Yes (Hospitalization)
  Sender: FDA-Public Use
  Company Number: CO-ROCHE-1145098

PATIENT
  Age: 16 Year
  Sex: Male

DRUGS (2)
  1. MIRCERA [Suspect]
     Indication: NEPHROGENIC ANAEMIA
     Route: 058
     Dates: start: 20120914
  2. MYCOPHENOLIC ACID [Concomitant]
     Indication: RENAL TRANSPLANT

REACTIONS (1)
  - Gastroenteritis [Recovering/Resolving]
